FAERS Safety Report 9006309 (Version 1)
Quarter: 2012Q4

REPORT INFORMATION
  Report Type: Spontaneous
  Country: DK (occurrence: None)
  Receive Date: 20121227
  Receipt Date: 20121227
  Transmission Date: 20130627
  Serious: Yes (Other)
  Sender: FDA-Public Use
  Company Number: 2012MA014197

PATIENT
  Age: 44 Year
  Sex: Male

DRUGS (4)
  1. NAPROXEN [Suspect]
     Indication: BACK DISORDER
     Route: 048
     Dates: start: 201207, end: 201207
  2. CO-CODAMOL [Concomitant]
  3. IBUPROFEN [Concomitant]
  4. PARACETAMOL [Concomitant]

REACTIONS (4)
  - Mouth ulceration [None]
  - Oedema mouth [None]
  - Oral mucosal blistering [None]
  - Blister [None]
